FAERS Safety Report 10232685 (Version 2)
Quarter: 2014Q2

REPORT INFORMATION
  Report Type: Spontaneous
  Country: CA (occurrence: CA)
  Receive Date: 20140612
  Receipt Date: 20140623
  Transmission Date: 20141212
  Serious: Yes (Other)
  Sender: FDA-Public Use
  Company Number: PHHY2014CA071836

PATIENT
  Age: 28 Year
  Sex: Female

DRUGS (3)
  1. NEORAL [Suspect]
     Indication: IMMUNOSUPPRESSION
  2. AZATHIOPRINE [Suspect]
     Indication: IMMUNOSUPPRESSION
  3. PREDNISONE [Suspect]
     Indication: IMMUNOSUPPRESSION

REACTIONS (3)
  - Abortion spontaneous [Unknown]
  - Tuberculosis [Recovered/Resolved]
  - Maternal exposure during pregnancy [Unknown]
